FAERS Safety Report 24251642 (Version 1)
Quarter: 2024Q3

REPORT INFORMATION
  Report Type: Spontaneous
  Country: US (occurrence: US)
  Receive Date: 20240827
  Receipt Date: 20240827
  Transmission Date: 20241016
  Serious: No
  Sender: JOHNSON AND JOHNSON
  Company Number: US-JNJFOC-20240842017

PATIENT
  Age: 45 Year
  Sex: Female

DRUGS (2)
  1. MOTRIN [Suspect]
     Active Substance: IBUPROFEN
     Indication: Procedural pain
     Dosage: 2 TABLETS DAILY
     Route: 065
     Dates: start: 202109
  2. MOTRIN [Suspect]
     Active Substance: IBUPROFEN
     Indication: Swelling

REACTIONS (1)
  - Product use in unapproved indication [Unknown]

NARRATIVE: CASE EVENT DATE: 20210901
